FAERS Safety Report 8106539-X (Version None)
Quarter: 2012Q1

REPORT INFORMATION
  Report Type: 
  Country: None (occurrence: None)
  Receive Date: 20120202
  Receipt Date: 20120125
  Transmission Date: 20120608
  Serious: Yes (Life-Threatening)
  Sender: FDA-Public Use
  Company Number: JP-BRISTOL-MYERS SQUIBB COMPANY-16353211

PATIENT
  Age: 41 Year
  Sex: Female
  Weight: 50 kg

DRUGS (3)
  1. ABILIFY [Suspect]
     Indication: SCHIZOPHRENIA
     Dosage: 18MG/DAY
     Route: 048
     Dates: start: 20111208, end: 20111220
  2. RISPERDAL [Concomitant]
     Dosage: ORAL LIQUID
     Route: 048
     Dates: start: 20111215, end: 20111220
  3. LITHIUM CARBONATE [Concomitant]
     Dosage: TABS
     Dates: end: 20111220

REACTIONS (1)
  - ELECTROCARDIOGRAM QT PROLONGED [None]
